FAERS Safety Report 15336966 (Version 1)
Quarter: 2018Q3

REPORT INFORMATION
  Report Type: Report from Study
  Country: US (occurrence: US)
  Receive Date: 20180831
  Receipt Date: 20180831
  Transmission Date: 20181010
  Serious: Yes (Hospitalization, Other)
  Sender: FDA-Public Use
  Company Number: US-BRISTOL-MYERS SQUIBB COMPANY-BMS-2018-079804

PATIENT
  Age: 87 Year
  Sex: Female
  Weight: 62.5 kg

DRUGS (2)
  1. IPILIMUMAB [Suspect]
     Active Substance: IPILIMUMAB
     Indication: MALIGNANT MELANOMA
     Dosage: 187 MG, UNK
     Route: 042
     Dates: start: 20180705, end: 20180705
  2. NIVOLUMAB [Suspect]
     Active Substance: NIVOLUMAB
     Indication: MALIGNANT MELANOMA
     Dosage: 62 MG, UNK
     Route: 042
     Dates: start: 20180705, end: 20180705

REACTIONS (4)
  - Pneumonia [Unknown]
  - Dehydration [Unknown]
  - Hyponatraemia [Unknown]
  - Adrenal insufficiency [Unknown]

NARRATIVE: CASE EVENT DATE: 20180716
